FAERS Safety Report 5026195-7 (Version None)
Quarter: 2006Q2

REPORT INFORMATION
  Report Type: 
  Country: None (occurrence: None)
  Receive Date: 20060608
  Receipt Date: 20010912
  Transmission Date: 20061013
  Serious: No
  Sender: FDA-Public Use
  Company Number: 2001-09-0492

PATIENT
  Age: 58 Year
  Sex: Male

DRUGS (3)
  1. ETHYOL [Suspect]
     Indication: ADVERSE DRUG REACTION
     Dosage: INTRAVENOUS
     Route: 042
     Dates: end: 20010903
  2. CARBOPLATIN [Suspect]
     Indication: NEOPLASM MALIGNANT
     Dosage: INTRAVENOUS
  3. RADIATION THERAPY [Concomitant]

REACTIONS (4)
  - BACTERIAL INFECTION [None]
  - CATHETER RELATED INFECTION [None]
  - GENERALISED ERYTHEMA [None]
  - PRURITUS [None]
